FAERS Safety Report 24647528 (Version 1)
Quarter: 2024Q4

REPORT INFORMATION
  Report Type: Spontaneous
  Country: CA (occurrence: None)
  Receive Date: 20241121
  Receipt Date: 20241121
  Transmission Date: 20250114
  Serious: Yes (Hospitalization, Disabling)
  Sender: Public
  Company Number: None

PATIENT
  Age: 42 Year
  Sex: Male
  Weight: 83.25 kg

DRUGS (4)
  1. SYSTANE GELDROPS [Suspect]
     Active Substance: POLYETHYLENE GLYCOL 400\PROPYLENE GLYCOL
     Indication: Glaucoma
     Dosage: FREQUENCY : AS NEEDED;?
     Route: 047
     Dates: start: 20230501, end: 20240430
  2. SYSTANE GELDROPS [Suspect]
     Active Substance: POLYETHYLENE GLYCOL 400\PROPYLENE GLYCOL
     Indication: Dry eye
  3. SYSTANE BALANCE [Suspect]
     Active Substance: PROPYLENE GLYCOL
  4. VITAMINS [Concomitant]
     Active Substance: VITAMINS

REACTIONS (3)
  - Injury corneal [None]
  - Impaired healing [None]
  - Pain [None]

NARRATIVE: CASE EVENT DATE: 20240401
